FAERS Safety Report 19060793 (Version 1)
Quarter: 2021Q1

REPORT INFORMATION
  Report Type: Spontaneous
  Country: US (occurrence: US)
  Receive Date: 20210325
  Receipt Date: 20210325
  Transmission Date: 20210420
  Serious: Yes (Other)
  Sender: FDA-Public Use
  Company Number: US-ELI_LILLY_AND_COMPANY-US202103008233

PATIENT
  Sex: Female

DRUGS (1)
  1. HUMALOG [Suspect]
     Active Substance: INSULIN LISPRO
     Indication: DIABETES MELLITUS
     Dosage: 12 U, DAILY
     Route: 058

REACTIONS (8)
  - Crohn^s disease [Unknown]
  - Multiple sclerosis [Unknown]
  - Drug ineffective [Unknown]
  - Injection site nodule [Unknown]
  - Fatigue [Recovered/Resolved]
  - Injection site scar [Unknown]
  - Irritable bowel syndrome [Recovered/Resolved]
  - Blood glucose increased [Recovered/Resolved]

NARRATIVE: CASE EVENT DATE: 2018
